FAERS Safety Report 15567603 (Version 2)
Quarter: 2018Q4

REPORT INFORMATION
  Report Type: Spontaneous
  Country: JP (occurrence: JP)
  Receive Date: 20181030
  Receipt Date: 20181105
  Transmission Date: 20190205
  Serious: Yes (Other)
  Sender: FDA-Public Use
  Company Number: JP-SA-2018SA294132

PATIENT
  Age: 56 Year
  Sex: Female

DRUGS (1)
  1. ZALTRAP [Suspect]
     Active Substance: ZIV-AFLIBERCEPT
     Indication: DIABETIC RETINAL OEDEMA
     Dosage: UNK
     Route: 031
     Dates: start: 20161129

REACTIONS (5)
  - Eye pain [Unknown]
  - Endophthalmitis [Unknown]
  - Staphylococcal infection [Unknown]
  - Visual acuity reduced [Recovered/Resolved]
  - Hypopyon [Unknown]

NARRATIVE: CASE EVENT DATE: 20161205
